FAERS Safety Report 5821882-2 (Version None)
Quarter: 2008Q3

REPORT INFORMATION
  Report Type: 
  Country: None (occurrence: None)
  Receive Date: 20080724
  Receipt Date: 20080714
  Transmission Date: 20090109
  Serious: Yes (Other)
  Sender: FDA-Public Use
  Company Number: TW-ROCHE-577227

PATIENT

DRUGS (2)
  1. PEGASYS [Suspect]
     Route: 058
  2. RIBAVIRIN [Suspect]
     Dosage: IN TWO DIVIDED DOSES
     Route: 048

REACTIONS (1)
  - BLEEDING VARICOSE VEIN [None]
